FAERS Safety Report 8767565 (Version 3)
Quarter: 2012Q4

REPORT INFORMATION
  Report Type: 
  Country: US (occurrence: US)
  Receive Date: 20120904
  Receipt Date: 20121203
  Transmission Date: 20130627
  Serious: Yes (Death, Other)
  Sender: FDA-Public Use
  Company Number: US-CELGENEUS-163-21880-12082975

PATIENT
  Sex: Male

DRUGS (5)
  1. REVLIMID [Suspect]
     Indication: MULTIPLE MYELOMA
     Dosage: 25 Milligram
     Route: 048
     Dates: start: 201207
  2. DEXAMETHASONE [Concomitant]
     Indication: MYELOMA
     Dosage: 40 Milligram
     Dates: start: 20120730, end: 20120802
  3. VELCADE [Concomitant]
     Indication: DRUG USE FOR UNKNOWN INDICATION
     Route: 065
     Dates: start: 20120730
  4. VELCADE [Concomitant]
     Dosage: .7 milligram/sq. meter
     Route: 065
     Dates: start: 20120802
  5. VELCADE [Concomitant]
     Route: 065
     Dates: start: 20120806

REACTIONS (5)
  - Shock [Fatal]
  - Multi-organ failure [Fatal]
  - Escherichia sepsis [Fatal]
  - Neutropenia [Fatal]
  - Plasma cell myeloma [Fatal]
